FAERS Safety Report 5967646-0 (Version None)
Quarter: 2008Q4

REPORT INFORMATION
  Report Type: 
  Country: None (occurrence: None)
  Receive Date: 20081126
  Receipt Date: 20081118
  Transmission Date: 20090506
  Serious: Yes (Other)
  Sender: FDA-Public Use
  Company Number: PHHY2008DE29215

PATIENT
  Sex: Male

DRUGS (2)
  1. EUCREAS [Suspect]
     Dosage: 1 DF, BID
     Dates: start: 20081001
  2. INSULIN [Concomitant]
     Dosage: THREE TIMES DAILY
     Route: 042

REACTIONS (1)
  - BLOOD GLUCOSE DECREASED [None]
